FAERS Safety Report 16823078 (Version 1)
Quarter: 2019Q3

REPORT INFORMATION
  Report Type: Spontaneous
  Country: US (occurrence: US)
  Receive Date: 20190918
  Receipt Date: 20190918
  Transmission Date: 20191005
  Serious: No
  Sender: FDA-Public Use
  Company Number: US-SHIRE-US201930663

PATIENT
  Sex: Female

DRUGS (2)
  1. CARBATROL [Suspect]
     Active Substance: CARBAMAZEPINE
     Indication: TRIGEMINAL NEURALGIA
     Dosage: 200 MILLIGRAM
     Route: 065
     Dates: start: 20190912
  2. CELEBREX [Concomitant]
     Active Substance: CELECOXIB
     Indication: PAIN
     Dosage: UNK

REACTIONS (5)
  - Headache [Unknown]
  - Abdominal discomfort [Unknown]
  - Candida infection [Unknown]
  - Anxiety [Unknown]
  - Sinusitis [Unknown]
